FAERS Safety Report 13009906 (Version 1)
Quarter: 2016Q4

REPORT INFORMATION
  Report Type: Report from Study
  Country: BR (occurrence: BR)
  Receive Date: 20161208
  Receipt Date: 20161208
  Transmission Date: 20170207
  Serious: Yes (Other)
  Sender: FDA-Public Use
  Company Number: PHHY2016BR121995

PATIENT
  Age: 39 Year
  Sex: Female
  Weight: 77 kg

DRUGS (6)
  1. AFINITOR [Suspect]
     Active Substance: EVEROLIMUS
     Indication: BREAST CANCER METASTATIC
     Dosage: 10 MG, QOD
     Route: 048
  2. AFINITOR [Suspect]
     Active Substance: EVEROLIMUS
     Dosage: 10 MG, QD (1 TABELT A DAY)
     Route: 048
     Dates: start: 201601
  3. AFINITOR [Suspect]
     Active Substance: EVEROLIMUS
     Dosage: 10 MG, QOD
     Route: 048
     Dates: start: 20160109
  4. AFINITOR [Suspect]
     Active Substance: EVEROLIMUS
     Dosage: 5 MG, QOD
     Route: 048
     Dates: start: 201607
  5. AROMASIN [Concomitant]
     Active Substance: EXEMESTANE
     Indication: BREAST CANCER
     Dosage: 25 MG, QD (1 TABLET A DAY)
     Route: 048
     Dates: start: 201601
  6. LETROZOLE. [Concomitant]
     Active Substance: LETROZOLE
     Indication: BREAST CANCER
     Dosage: 2.5 MG, QD (1 TABLET A DAY)
     Route: 048

REACTIONS (15)
  - Metastases to central nervous system [Recovering/Resolving]
  - Headache [Not Recovered/Not Resolved]
  - Decreased appetite [Recovering/Resolving]
  - Epistaxis [Recovering/Resolving]
  - Back pain [Unknown]
  - Sensitivity of teeth [Recovering/Resolving]
  - Drug prescribing error [Unknown]
  - Malignant neoplasm progression [Recovering/Resolving]
  - Pneumonitis [Recovering/Resolving]
  - Stomatitis [Recovering/Resolving]
  - Myalgia [Not Recovered/Not Resolved]
  - Vaginal discharge [Recovering/Resolving]
  - Inappropriate schedule of drug administration [Unknown]
  - Bone pain [Recovering/Resolving]
  - Dyspnoea [Recovering/Resolving]

NARRATIVE: CASE EVENT DATE: 201608
